FAERS Safety Report 9462369 (Version 1)
Quarter: 2013Q3

REPORT INFORMATION
  Report Type: Spontaneous
  Country: US (occurrence: None)
  Receive Date: 20130815
  Receipt Date: 20130815
  Transmission Date: 20140515
  Serious: Yes (Hospitalization)
  Sender: FDA-Public Use
  Company Number: None

PATIENT
  Age: 68 Year
  Sex: Female
  Weight: 82.2 kg

DRUGS (14)
  1. RAPAMYCIN [Suspect]
     Indication: LEIOMYOSARCOMA
     Dates: start: 20130318, end: 20130318
  2. PAZOPANIB [Suspect]
     Dates: start: 20130318, end: 20130318
  3. METHIMAZOLE [Concomitant]
  4. ASPIRIN [Concomitant]
  5. CALCIUM [Concomitant]
  6. CINNAMON BARK [Concomitant]
  7. CO Q 10 [Concomitant]
  8. COLACE [Concomitant]
  9. HUMULIN 70/30 [Concomitant]
  10. JANUVIA [Concomitant]
  11. AMLODIPINE [Concomitant]
  12. ALENDRONATE [Concomitant]
  13. PRAVASTATIN [Concomitant]
  14. PROPAFENONE [Concomitant]

REACTIONS (3)
  - Paradoxical embolism [None]
  - Deep vein thrombosis [None]
  - Thrombocytopenia [None]
